FAERS Safety Report 11443508 (Version 2)
Quarter: 2015Q3

REPORT INFORMATION
  Report Type: Spontaneous
  Country: FR (occurrence: FR)
  Receive Date: 20150901
  Receipt Date: 20150921
  Transmission Date: 20151125
  Serious: Yes (Hospitalization)
  Sender: FDA-Public Use
  Company Number: FR-009507513-1508FRA013083

PATIENT
  Age: 33 Year
  Sex: Female

DRUGS (2)
  1. CELESTENE 4MG/1ML [Suspect]
     Active Substance: BETAMETHASONE
     Dosage: UNK
     Route: 030
     Dates: start: 20150502, end: 20150503
  2. TRACTOCILE [Suspect]
     Active Substance: ATOSIBAN
     Dosage: UNK
     Route: 042
     Dates: start: 20150502, end: 20150504

REACTIONS (1)
  - Acute pulmonary oedema [Recovered/Resolved]

NARRATIVE: CASE EVENT DATE: 20150504
